FAERS Safety Report 4429649-7 (Version None)
Quarter: 2004Q3

REPORT INFORMATION
  Report Type: 
  Country: None (occurrence: None)
  Receive Date: 20040819
  Receipt Date: 20040812
  Transmission Date: 20050211
  Serious: Yes (Disabling)
  Sender: FDA-Public Use
  Company Number: US-MERCK-0408USA01100

PATIENT
  Age: 55 Year
  Sex: Male

DRUGS (3)
  1. GLIPIZIDE [Concomitant]
     Route: 065
  2. ZOCOR [Suspect]
     Indication: BLOOD CHOLESTEROL INCREASED
     Route: 048
     Dates: start: 20040101, end: 20040101
  3. VERAPAMIL [Concomitant]
     Route: 065

REACTIONS (6)
  - ANGIOPATHY [None]
  - BURNING SENSATION [None]
  - MYALGIA [None]
  - OEDEMA PERIPHERAL [None]
  - PAIN IN EXTREMITY [None]
  - VEIN PAIN [None]
